FAERS Safety Report 23790413 (Version 1)
Quarter: 2024Q2

REPORT INFORMATION
  Report Type: Spontaneous
  Country: PT (occurrence: PT)
  Receive Date: 20240427
  Receipt Date: 20240427
  Transmission Date: 20240716
  Serious: Yes (Hospitalization, Other)
  Sender: FDA-Public Use
  Company Number: PT-CELLTRION INC.-2024PT009548

PATIENT

DRUGS (3)
  1. TRASTUZUMAB [Suspect]
     Active Substance: TRASTUZUMAB
     Indication: Product used for unknown indication
     Dosage: TRASTUZUMAB MONOTHERAPY
  2. AMLODIPINE [Concomitant]
     Active Substance: AMLODIPINE BESYLATE
     Dosage: 5 MG ONCE DAILY
  3. ENALAPRIL [Concomitant]
     Active Substance: ENALAPRIL
     Dosage: ENALAPRIL 10 MG ONCE DAILY

REACTIONS (2)
  - Haemorrhagic stroke [Recovered/Resolved]
  - Hypertension [Not Recovered/Not Resolved]
